FAERS Safety Report 4784038-0 (Version None)
Quarter: 2005Q3

REPORT INFORMATION
  Report Type: 
  Country: None (occurrence: None)
  Receive Date: 20050930
  Receipt Date: 20050922
  Transmission Date: 20060218
  Serious: Yes (Hospitalization)
  Sender: FDA-Public Use
  Company Number: US-BOEHRINGER INGELHEIM PHARMACEUTICALS, INC.-2005-BP-16808BP

PATIENT
  Age: 80 Year
  Sex: Male

DRUGS (6)
  1. SPIRIVA [Suspect]
     Indication: CHRONIC OBSTRUCTIVE PULMONARY DISEASE
     Route: 055
     Dates: start: 20050905, end: 20050918
  2. ATENOLOL [Concomitant]
     Indication: HYPERTENSION
  3. FLOVENT [Concomitant]
     Indication: CHRONIC OBSTRUCTIVE PULMONARY DISEASE
  4. ASPIRIN [Concomitant]
  5. TYLENOL (CAPLET) [Concomitant]
  6. VERAPAMIL [Concomitant]

REACTIONS (4)
  - BLOOD PRESSURE INCREASED [None]
  - DIARRHOEA [None]
  - LUNG INFECTION [None]
  - VOMITING [None]
